FAERS Safety Report 4388316-9 (Version None)
Quarter: 2004Q2

REPORT INFORMATION
  Report Type: 
  Country: None (occurrence: None)
  Receive Date: 20040625
  Receipt Date: 20040617
  Transmission Date: 20050107
  Serious: Yes (Death)
  Sender: FDA-Public Use
  Company Number: F01200401418

PATIENT
  Age: 75 Year
  Sex: Male

DRUGS (3)
  1. (OXALIPLATIN) - SOLUTION - 257 MG [Suspect]
     Indication: NON-SMALL CELL LUNG CANCER
     Dosage: 257 MG Q3W (CUMULATIVE DOSE : 257 MG)
     Route: 042
     Dates: start: 20040116, end: 20040116
  2. (GEMCITABINE) - SOLUTION - 4950 MG [Suspect]
     Dosage: 4950 MG ON DAY 1 AND DAY 8, Q3W (CUMULATIVE DOSE : 4950 MG)
     Route: 042
     Dates: start: 20040123, end: 20040123
  3. LEVOTHYROXINE SODIUM [Concomitant]

REACTIONS (2)
  - DYSPNOEA [None]
  - SUDDEN DEATH [None]
